FAERS Safety Report 8554749-X (Version None)
Quarter: 2012Q3

REPORT INFORMATION
  Report Type: 
  Country: None (occurrence: None)
  Receive Date: 20120731
  Receipt Date: 20120709
  Transmission Date: 20120928
  Serious: No
  Sender: FDA-Public Use
  Company Number: US-ASTRAZENECA-2012SE46820

PATIENT
  Age: 63 Year
  Sex: Female
  Weight: 63.5 kg

DRUGS (3)
  1. CALCIUM [Concomitant]
  2. NEXIUM [Suspect]
     Indication: GASTROOESOPHAGEAL REFLUX DISEASE
     Route: 048
  3. VITAMIN D [Concomitant]

REACTIONS (1)
  - OSTEOPENIA [None]
